FAERS Safety Report 22304790 (Version 1)
Quarter: 2023Q2

REPORT INFORMATION
  Report Type: Spontaneous
  Country: US (occurrence: None)
  Receive Date: 20230509
  Receipt Date: 20230509
  Transmission Date: 20230721
  Serious: No
  Sender: FDA-Public Use
  Company Number: None

PATIENT
  Age: 39 Year
  Sex: Female
  Weight: 90.9 kg

DRUGS (6)
  1. METHYLPHENIDATE HYDROCHLORIDE [Suspect]
     Active Substance: METHYLPHENIDATE HYDROCHLORIDE
     Indication: Attention deficit hyperactivity disorder
     Dosage: OTHER QUANTITY : 1 TABLET(S);?
     Route: 048
     Dates: start: 20230424, end: 20230502
  2. Metformin ER 500mg 1x day [Concomitant]
  3. Spironolactone 100mg 1x day [Concomitant]
  4. FISH OIL [Concomitant]
  5. 1000 Vitamin D [Concomitant]
  6. Slo-Mag magnesium chloride 200mg [Concomitant]

REACTIONS (9)
  - Product substitution issue [None]
  - Drug intolerance [None]
  - Drug ineffective [None]
  - Myalgia [None]
  - Distractibility [None]
  - Impaired driving ability [None]
  - Job dissatisfaction [None]
  - Insomnia [None]
  - Heart rate increased [None]

NARRATIVE: CASE EVENT DATE: 20230502
